FAERS Safety Report 6811459-4 (Version None)
Quarter: 2010Q2

REPORT INFORMATION
  Report Type: 
  Country: None (occurrence: None)
  Receive Date: 20100629
  Receipt Date: 20100629
  Transmission Date: 20101027
  Serious: No
  Sender: FDA-Public Use
  Company Number: None

PATIENT
  Age: 51 Year
  Sex: Female
  Weight: 57.1532 kg

DRUGS (3)
  1. ALPRAZOLAM  1MG GREENSTONELLC [Suspect]
     Indication: ANXIETY DISORDER
     Dosage: 1 MG 3 TIMES A DAY
     Dates: start: 20030419, end: 20100701
  2. ALPRAZOLAM  1MG GREENSTONELLC [Suspect]
     Indication: PANIC DISORDER
     Dosage: 1 MG 3 TIMES A DAY
     Dates: start: 20030419, end: 20100701
  3. ALPRALOZAM 1MG GREENSTONELLC [Suspect]

REACTIONS (8)
  - ANXIETY [None]
  - DRUG DEPENDENCE [None]
  - DRUG INEFFECTIVE [None]
  - FEAR [None]
  - HEADACHE [None]
  - INSOMNIA [None]
  - PRODUCT SUBSTITUTION ISSUE [None]
  - TREMOR [None]
